FAERS Safety Report 8502901-1 (Version None)
Quarter: 2012Q3

REPORT INFORMATION
  Report Type: 
  Country: None (occurrence: None)
  Receive Date: 20120711
  Receipt Date: 20120702
  Transmission Date: 20120928
  Serious: Yes (Hospitalization)
  Sender: FDA-Public Use
  Company Number: PL-ASTRAZENECA-2012SE31787

PATIENT
  Age: 23219 Day
  Sex: Male

DRUGS (7)
  1. ALLOPURINOL [Concomitant]
     Indication: GOUT
     Route: 048
  2. BISOPROLOL FUMARATE [Concomitant]
     Indication: MYOCARDIAL ISCHAEMIA
     Route: 048
  3. ASPIRIN [Suspect]
     Route: 048
  4. ATORVASTATIN [Concomitant]
     Indication: MYOCARDIAL ISCHAEMIA
     Route: 048
  5. AZD6140 [Suspect]
     Indication: CORONARY ARTERY DISEASE
     Route: 048
     Dates: start: 20120217, end: 20120512
  6. DICLOFENAC SODIUM [Concomitant]
     Indication: GOUT
     Route: 048
  7. RAMIPRYL [Concomitant]
     Indication: MYOCARDIAL ISCHAEMIA
     Route: 048

REACTIONS (1)
  - EROSIVE DUODENITIS [None]
